FAERS Safety Report 24079457 (Version 1)
Quarter: 2024Q3

REPORT INFORMATION
  Report Type: Spontaneous
  Country: US (occurrence: US)
  Receive Date: 20240711
  Receipt Date: 20240711
  Transmission Date: 20241017
  Serious: Yes (Hospitalization, Other)
  Sender: DR REDDYS
  Company Number: None

PATIENT
  Age: 64 Year
  Sex: Male

DRUGS (2)
  1. GEMCITABINE [Suspect]
     Active Substance: GEMCITABINE
     Indication: Bladder transitional cell carcinoma
     Dosage: SPLIT DOSE [DOSE 1000 MG/M2 ON DAY 1 AND 8 GIVEN EVERY 21-DAY CYCLES]
  2. CISPLATIN [Suspect]
     Active Substance: CISPLATIN
     Indication: Bladder transitional cell carcinoma
     Dosage: SPLIT DOSE [DOSE 35 MG/M2 ON DAY 1 AND 8 GIVEN EVERY 21-DAY CYCLES]

REACTIONS (1)
  - Immune thrombocytopenia [Unknown]
